FAERS Safety Report 7671416-5 (Version None)
Quarter: 2011Q3

REPORT INFORMATION
  Report Type: 
  Country: None (occurrence: None)
  Receive Date: 20110809
  Receipt Date: 20110801
  Transmission Date: 20111222
  Serious: Yes (Hospitalization)
  Sender: FDA-Public Use
  Company Number: US-NOVOPROD-333058

PATIENT
  Age: 51 Year
  Sex: Female
  Weight: 84.807 kg

DRUGS (3)
  1. NORVASC [Concomitant]
     Indication: HYPERTENSION
  2. VALTURNA [Concomitant]
     Indication: HYPERTENSION
  3. VICTOZA [Suspect]
     Indication: TYPE 2 DIABETES MELLITUS
     Dosage: UNK
     Route: 058
     Dates: start: 20101101, end: 20110713

REACTIONS (2)
  - PANCREATITIS ACUTE [None]
  - BLOOD GLUCOSE INCREASED [None]
